FAERS Safety Report 8407085-6 (Version None)
Quarter: 2012Q2

REPORT INFORMATION
  Report Type: 
  Country: None (occurrence: None)
  Receive Date: 20120604
  Receipt Date: 20120530
  Transmission Date: 20120825
  Serious: Yes (Hospitalization)
  Sender: FDA-Public Use
  Company Number: FR-PFIZER INC-2012129732

PATIENT
  Age: 53 Year
  Sex: Female

DRUGS (31)
  1. ERYTHROMYCIN [Concomitant]
     Dosage: UNK
     Dates: start: 20120406, end: 20120427
  2. ZOCOR [Concomitant]
  3. NEXIUM [Concomitant]
  4. ARANESP [Concomitant]
  5. CANCIDAS [Concomitant]
     Dosage: UNK
     Route: 042
     Dates: start: 20120429
  6. ZYVOX [Concomitant]
     Dosage: UNK
     Dates: start: 20120504, end: 20120511
  7. LASIX [Concomitant]
  8. ZYVOX [Concomitant]
     Dosage: UNK
     Dates: start: 20120424, end: 20120424
  9. TENORMIN [Concomitant]
  10. TAZOBACTAM [Suspect]
     Dosage: UNK
     Route: 042
     Dates: start: 20120404, end: 20120408
  11. TAZOBACTAM [Suspect]
     Dosage: UNK
     Route: 042
     Dates: start: 20120424, end: 20120425
  12. LERCANIDIPINE [Concomitant]
  13. AMIKACIN [Concomitant]
     Dosage: UNK
     Route: 042
     Dates: start: 20120404, end: 20120409
  14. PREDNISOLONE [Concomitant]
  15. PERINDOPRIL ERBUMINE [Concomitant]
  16. RENAGEL [Concomitant]
  17. LEXOMIL [Concomitant]
  18. ROCEPHIN [Suspect]
     Dosage: UNK
     Route: 042
     Dates: start: 20120408, end: 20120412
  19. AMIKACIN [Concomitant]
     Dosage: UNK
     Route: 042
     Dates: start: 20120426, end: 20120504
  20. ERYTHROMYCIN [Concomitant]
     Dosage: UNK
     Dates: start: 20120514
  21. NEORAL [Concomitant]
  22. CELLCEPT [Concomitant]
  23. UN-ALFA [Concomitant]
  24. TAZOBACTAM [Suspect]
     Dosage: UNK
     Route: 042
     Dates: start: 20120501, end: 20120502
  25. CANCIDAS [Concomitant]
     Indication: CANDIDIASIS
     Dosage: UNK
     Route: 042
     Dates: start: 20120416, end: 20120420
  26. IRBESARTAN [Concomitant]
  27. FLUCONAZOLE [Suspect]
     Dosage: UNK
     Route: 042
     Dates: start: 20120421, end: 20120421
  28. VANCOMYCIN [Suspect]
     Dosage: UNK
     Route: 042
     Dates: start: 20120424, end: 20120424
  29. ROCEPHIN [Suspect]
     Dosage: UNK
     Route: 042
     Dates: start: 20120425, end: 20120429
  30. CINACALCET [Concomitant]
  31. VITAMIN D [Concomitant]

REACTIONS (2)
  - DRUG RASH WITH EOSINOPHILIA AND SYSTEMIC SYMPTOMS [None]
  - AGRANULOCYTOSIS [None]
